FAERS Safety Report 4759230-1 (Version None)
Quarter: 2005Q3

REPORT INFORMATION
  Report Type: 
  Country: None (occurrence: None)
  Receive Date: 20050831
  Receipt Date: 20050822
  Transmission Date: 20060218
  Serious: Yes (Hospitalization, Other)
  Sender: FDA-Public Use
  Company Number: GBS050617678

PATIENT
  Age: 37 Year
  Sex: Female
  Weight: 63 kg

DRUGS (4)
  1. FLUOXETINE [Suspect]
     Indication: DEPRESSION
     Dosage: 20 MG
     Dates: start: 20050317, end: 20050427
  2. DEPO-PROVERA SUSPENSION/INJ [Concomitant]
  3. IRON [Concomitant]
  4. MULTI-VITAMINS [Concomitant]

REACTIONS (1)
  - ERYTHEMA MULTIFORME [None]
